FAERS Safety Report 19212588 (Version 1)
Quarter: 2021Q2

REPORT INFORMATION
  Report Type: Spontaneous
  Country: US (occurrence: US)
  Receive Date: 20210504
  Receipt Date: 20210504
  Transmission Date: 20210717
  Serious: No
  Sender: FDA-Public Use
  Company Number: US-GW PHARMA-202104USGW02169

PATIENT

DRUGS (2)
  1. EPIDIOLEX [Suspect]
     Active Substance: CANNABIDIOL
     Dosage: 270 MILLIGRAM, BID
     Route: 048
     Dates: start: 202104
  2. EPIDIOLEX [Suspect]
     Active Substance: CANNABIDIOL
     Indication: LENNOX-GASTAUT SYNDROME
     Dosage: UNK
     Route: 048
     Dates: end: 2021

REACTIONS (2)
  - Seizure [Unknown]
  - Urinary incontinence [Unknown]

NARRATIVE: CASE EVENT DATE: 202104
